FAERS Safety Report 22148598 (Version 1)
Quarter: 2023Q1

REPORT INFORMATION
  Report Type: Spontaneous
  Country: FR (occurrence: FR)
  Receive Date: 20230328
  Receipt Date: 20230328
  Transmission Date: 20230418
  Serious: Yes (Death, Life-Threatening, Hospitalization, Other)
  Sender: FDA-Public Use
  Company Number: FR-TAKEDA-2023TUS027407

PATIENT
  Age: 74 Year
  Sex: Male

DRUGS (132)
  1. LORAZEPAM [Suspect]
     Active Substance: LORAZEPAM
     Indication: Anxiolytic therapy
     Dosage: 2.5 MILLIGRAM
     Route: 048
     Dates: start: 20200726, end: 20200727
  2. LORAZEPAM [Suspect]
     Active Substance: LORAZEPAM
     Dosage: 40 MILLIGRAM, QD
     Route: 048
     Dates: start: 20200726, end: 20200727
  3. LORAZEPAM [Suspect]
     Active Substance: LORAZEPAM
     Dosage: 10 MILLIGRAM,QD
     Route: 048
     Dates: start: 20200726, end: 20200727
  4. LORAZEPAM [Suspect]
     Active Substance: LORAZEPAM
     Dosage: 2.5 MILLIGRAM, QID
     Route: 048
     Dates: start: 20200726, end: 20200727
  5. LORAZEPAM [Suspect]
     Active Substance: LORAZEPAM
     Dosage: 10 MILLIGRAM,QD
     Route: 048
  6. LORAZEPAM [Suspect]
     Active Substance: LORAZEPAM
     Dosage: 10 MILLIGRAM,QD
     Route: 048
  7. ISOSORBIDE DINITRATE [Suspect]
     Active Substance: ISOSORBIDE DINITRATE
     Indication: Product used for unknown indication
     Dosage: UNK
     Route: 065
     Dates: start: 20200714, end: 20200720
  8. DIAZEPAM [Suspect]
     Active Substance: DIAZEPAM
     Indication: Product used for unknown indication
     Dosage: 746.35 MILLIGRAM
     Route: 065
  9. DIAZEPAM [Suspect]
     Active Substance: DIAZEPAM
     Dosage: UNK
     Route: 065
  10. ISUPREL [Suspect]
     Active Substance: ISOPROTERENOL HYDROCHLORIDE
     Indication: Product used for unknown indication
     Dosage: UNK
     Route: 065
     Dates: start: 20200711, end: 20200713
  11. CEFOTAXIME [Suspect]
     Active Substance: CEFOTAXIME SODIUM
     Indication: Pneumonia
     Dosage: 6 GRAM
     Route: 042
  12. CEFOTAXIME [Suspect]
     Active Substance: CEFOTAXIME SODIUM
     Dosage: 42 GRAM
     Route: 042
  13. CEFOTAXIME [Suspect]
     Active Substance: CEFOTAXIME SODIUM
     Dosage: 42 GRAM, BID
     Route: 042
     Dates: start: 20200708
  14. CEFOTAXIME [Suspect]
     Active Substance: CEFOTAXIME SODIUM
     Dosage: 2 GRAM, TID
     Route: 042
     Dates: start: 20200708, end: 20200715
  15. CEFOTAXIME [Suspect]
     Active Substance: CEFOTAXIME SODIUM
     Dosage: 6 GRAM
     Route: 042
     Dates: start: 20200708, end: 20200715
  16. OXAZEPAM [Suspect]
     Active Substance: OXAZEPAM
     Indication: Anxiolytic therapy
     Dosage: 20 MILLIGRAM
     Route: 048
  17. OXAZEPAM [Suspect]
     Active Substance: OXAZEPAM
     Dosage: 10 MILLIGRAM, QD
     Route: 048
     Dates: start: 20200802, end: 20200804
  18. DUPHALAC [Suspect]
     Active Substance: LACTULOSE
     Indication: Constipation
     Dosage: 80 MILLIGRAM
     Route: 048
  19. DUPHALAC [Suspect]
     Active Substance: LACTULOSE
     Dosage: 40 MILLIGRAM, QD
     Route: 048
  20. DUPHALAC [Suspect]
     Active Substance: LACTULOSE
     Dosage: 40 GRAM
     Route: 048
     Dates: start: 20200713, end: 20200715
  21. DUPHALAC [Suspect]
     Active Substance: LACTULOSE
     Dosage: 20 GRAM, BID
     Route: 048
     Dates: start: 20200713, end: 20200715
  22. CALCIUM GLUCONATE [Suspect]
     Active Substance: CALCIUM GLUCONATE
     Indication: Product used for unknown indication
     Dosage: UNK
     Route: 065
  23. DIAMOX SEQUELS [Suspect]
     Active Substance: ACETAZOLAMIDE
     Indication: Product used for unknown indication
     Dosage: UNK
     Route: 058
  24. MORPHINE SULFATE [Suspect]
     Active Substance: MORPHINE SULFATE
     Indication: Product used for unknown indication
     Dosage: UNK
     Route: 065
  25. FENOTEROL\IPRATROPIUM [Suspect]
     Active Substance: FENOTEROL\IPRATROPIUM
     Indication: Inhalation therapy
     Dosage: 0.5 MILLIGRAM, TID
     Route: 055
     Dates: start: 20200730, end: 20200803
  26. FENOTEROL\IPRATROPIUM [Suspect]
     Active Substance: FENOTEROL\IPRATROPIUM
     Dosage: 6 MILLIGRAM
     Route: 055
  27. FENOTEROL\IPRATROPIUM [Suspect]
     Active Substance: FENOTEROL\IPRATROPIUM
     Dosage: 1.5 MILLIGRAM, TID
     Route: 055
     Dates: start: 20200730, end: 20200803
  28. LANSOPRAZOLE [Suspect]
     Active Substance: LANSOPRAZOLE
     Indication: Prophylaxis
     Dosage: 3 MILLIGRAM, QD
     Route: 048
     Dates: start: 20200210
  29. LANSOPRAZOLE [Suspect]
     Active Substance: LANSOPRAZOLE
     Indication: Gastrointestinal disorder prophylaxis
     Dosage: 3 MILLIGRAM, QD
     Route: 048
     Dates: start: 20200710
  30. LANSOPRAZOLE [Suspect]
     Active Substance: LANSOPRAZOLE
     Indication: Gastrointestinal disorder prophylaxis
     Dosage: 30 MILLIGRAM, QD
     Route: 048
     Dates: start: 20200710
  31. LANSOPRAZOLE [Suspect]
     Active Substance: LANSOPRAZOLE
     Dosage: 78 MILLIGRAM, QD
     Route: 048
     Dates: start: 20200710
  32. LANSOPRAZOLE [Suspect]
     Active Substance: LANSOPRAZOLE
     Dosage: 30 MILLIGRAM, QD
     Route: 048
  33. LANSOPRAZOLE [Suspect]
     Active Substance: LANSOPRAZOLE
     Dosage: 78 MILLIGRAM, SINGLE
     Route: 048
     Dates: start: 20200710
  34. LANSOPRAZOLE [Suspect]
     Active Substance: LANSOPRAZOLE
     Dosage: 78 MILLIGRAM
     Route: 048
     Dates: end: 20200805
  35. URAPIDIL [Suspect]
     Active Substance: URAPIDIL
     Indication: Hypertension
     Dosage: 5 MILLIGRAM, Q1HR
     Route: 042
     Dates: start: 20200709, end: 20200709
  36. URAPIDIL [Suspect]
     Active Substance: URAPIDIL
     Dosage: 120 MILLIGRAM
     Route: 065
  37. CISATRACURIUM BESYLATE [Suspect]
     Active Substance: CISATRACURIUM BESYLATE
     Indication: Endotracheal intubation
     Dosage: 20 MILLIGRAM,QD
     Route: 042
     Dates: start: 20200715, end: 20200715
  38. CISATRACURIUM BESYLATE [Suspect]
     Active Substance: CISATRACURIUM BESYLATE
     Indication: Neuromuscular blocking therapy
  39. RACECADOTRIL [Suspect]
     Active Substance: RACECADOTRIL
     Indication: Product used for unknown indication
     Dosage: 100 MILLIGRAM
     Route: 058
     Dates: start: 20200727, end: 20200804
  40. METHYLPREDNISOLONE SODIUM SUCCINATE [Suspect]
     Active Substance: METHYLPREDNISOLONE SODIUM SUCCINATE
     Indication: Acute respiratory distress syndrome
     Dosage: 1800 MILLIGRAM, Q2WEEKS
     Route: 042
  41. CALCIUM GLUCONATE [Suspect]
     Active Substance: CALCIUM GLUCONATE
     Indication: Product used for unknown indication
     Dosage: UNK
     Route: 065
  42. MIDAZOLAM HYDROCHLORIDE [Suspect]
     Active Substance: MIDAZOLAM HYDROCHLORIDE
     Indication: Sedation
     Dosage: 5 MILLIGRAM, Q1HR
     Route: 042
     Dates: start: 20200709, end: 20200713
  43. MIDAZOLAM HYDROCHLORIDE [Suspect]
     Active Substance: MIDAZOLAM HYDROCHLORIDE
     Indication: Seizure
     Dosage: UNK
     Route: 042
  44. CALCIUM PHOSPHATE, DIBASIC, ANHYDROUS\MAGNESIUM GLYCEROPHOSPHATE\PHOSP [Suspect]
     Active Substance: CALCIUM PHOSPHATE, DIBASIC, ANHYDROUS\MAGNESIUM GLYCEROPHOSPHATE\PHOSPHORIC ACID\SODIUM PHOSPHATE, D
     Indication: Pneumonia
     Dosage: 6 GRAM, QD
     Route: 042
     Dates: start: 20200708, end: 20200715
  45. THIAMINE HYDROCHLORIDE [Suspect]
     Active Substance: THIAMINE HYDROCHLORIDE
     Indication: Product used for unknown indication
     Dosage: UNK
     Route: 065
  46. SERTRALINE [Suspect]
     Active Substance: SERTRALINE HYDROCHLORIDE
     Indication: Depression
     Dosage: 746.35 MILLIGRAM
     Route: 048
     Dates: start: 20200726, end: 20200810
  47. SERTRALINE [Suspect]
     Active Substance: SERTRALINE HYDROCHLORIDE
     Indication: Pneumonia
     Dosage: 50 MILLIGRAM, QD
     Route: 048
  48. SERTRALINE [Suspect]
     Active Substance: SERTRALINE HYDROCHLORIDE
     Dosage: 50 MILLIGRAM, QD
     Route: 048
     Dates: start: 20200726, end: 20200810
  49. SERTRALINE [Suspect]
     Active Substance: SERTRALINE HYDROCHLORIDE
     Dosage: 746.35 MILLIGRAM
     Route: 048
  50. SERTRALINE [Suspect]
     Active Substance: SERTRALINE HYDROCHLORIDE
     Dosage: 3 INTERNATIONAL UNIT, TID
     Route: 042
     Dates: start: 20200708, end: 20200715
  51. RACECADOTRIL [Suspect]
     Active Substance: RACECADOTRIL
     Indication: Product used for unknown indication
     Dosage: UNK
     Route: 065
  52. POTASSIUM CHLORIDE [Suspect]
     Active Substance: POTASSIUM CHLORIDE
     Indication: Product used for unknown indication
     Dosage: UNK
     Route: 065
  53. POTASSIUM GLUCONATE [Suspect]
     Active Substance: POTASSIUM GLUCONATE
     Indication: Product used for unknown indication
     Dosage: UNK
     Route: 065
  54. PIPERACILLIN AND TAZOBACTAM [Suspect]
     Active Substance: PIPERACILLIN SODIUM\TAZOBACTAM SODIUM
     Indication: Pneumonia
     Dosage: 4 GRAM, TID
     Route: 042
     Dates: start: 20200723, end: 20200730
  55. PIPERACILLIN AND TAZOBACTAM [Suspect]
     Active Substance: PIPERACILLIN SODIUM\TAZOBACTAM SODIUM
     Indication: Tracheobronchitis
     Dosage: 84 GRAM
     Route: 042
  56. PIPERACILLIN AND TAZOBACTAM [Suspect]
     Active Substance: PIPERACILLIN SODIUM\TAZOBACTAM SODIUM
     Dosage: 12 GRAM, QD
     Route: 042
     Dates: start: 20200723, end: 20200730
  57. OXAZEPAM [Suspect]
     Active Substance: OXAZEPAM
     Indication: Anxiolytic therapy
     Dosage: 20 MILLIGRAM
     Route: 065
  58. OXAZEPAM [Suspect]
     Active Substance: OXAZEPAM
     Dosage: 10 MILLIGRAM, QD
     Route: 048
  59. OXAZEPAM [Suspect]
     Active Substance: OXAZEPAM
     Dosage: 10 MILLIGRAM, QD
     Route: 048
     Dates: start: 20200802, end: 20200804
  60. OXAZEPAM [Suspect]
     Active Substance: OXAZEPAM
     Dosage: 20 MILLIGRAM, QD
     Route: 065
  61. OXAZEPAM [Suspect]
     Active Substance: OXAZEPAM
     Dosage: 90 MILLIGRAM
     Route: 065
  62. OXAZEPAM [Suspect]
     Active Substance: OXAZEPAM
     Dosage: 10 MILLIGRAM, QD
     Route: 048
     Dates: start: 20200802, end: 20200804
  63. OXAZEPAM [Suspect]
     Active Substance: OXAZEPAM
     Dosage: 20 MILLIGRAM, QD
     Route: 048
  64. OXAZEPAM [Suspect]
     Active Substance: OXAZEPAM
     Dosage: 90 MILLIGRAM, QD
     Route: 065
  65. SPIRAMYCIN [Suspect]
     Active Substance: SPIRAMYCIN
     Indication: Pneumonia
     Dosage: 3000000 INTERNATIONAL UNIT, TID
     Route: 042
     Dates: start: 20200708, end: 20200715
  66. SPIRAMYCIN [Suspect]
     Active Substance: SPIRAMYCIN
     Dosage: 63 INTERNATIONAL UNIT
     Route: 065
  67. IPRATROPIUM [Suspect]
     Active Substance: IPRATROPIUM
     Indication: Inhalation therapy
     Dosage: 0.5 MILLIGRAM, TID
     Route: 055
     Dates: start: 20200730, end: 20200803
  68. IPRATROPIUM [Suspect]
     Active Substance: IPRATROPIUM
     Dosage: 1.5 MILLIGRAM
     Route: 055
     Dates: start: 20200730, end: 20200803
  69. IPRATROPIUM [Suspect]
     Active Substance: IPRATROPIUM
     Dosage: 1.5 MILLIGRAM
     Route: 055
  70. IPRATROPIUM [Suspect]
     Active Substance: IPRATROPIUM
     Dosage: 1.5 MILLIGRAM, TID
     Route: 055
     Dates: start: 20200730, end: 20200803
  71. IPRATROPIUM [Suspect]
     Active Substance: IPRATROPIUM
     Dosage: 1.5 MILLIGRAM
     Route: 055
  72. IPRATROPIUM [Suspect]
     Active Substance: IPRATROPIUM
     Dosage: 6 MILLIGRAM
     Route: 055
  73. IPRATROPIUM [Suspect]
     Active Substance: IPRATROPIUM
     Dosage: 6 MILLIGRAM
     Route: 055
  74. IPRATROPIUM [Suspect]
     Active Substance: IPRATROPIUM
     Dosage: 6 MILLIGRAM
     Route: 065
  75. REMIFENTANIL HYDROCHLORIDE [Suspect]
     Active Substance: REMIFENTANIL HYDROCHLORIDE
     Indication: Sedation
     Dosage: 1 MICROGRAM, INTRAVENOUS INFUSION
     Route: 042
     Dates: start: 20200720, end: 20200730
  76. REMIFENTANIL HYDROCHLORIDE [Suspect]
     Active Substance: REMIFENTANIL HYDROCHLORIDE
     Dosage: 0.1 MICROGRAM/KILOGRAM
     Route: 042
     Dates: start: 20200720, end: 20200730
  77. LACTULOSE [Suspect]
     Active Substance: LACTULOSE
     Indication: Constipation
     Dosage: 80 GRAM
     Route: 048
  78. LACTULOSE [Suspect]
     Active Substance: LACTULOSE
     Dosage: 80 GRAM
     Route: 048
  79. LACTULOSE [Suspect]
     Active Substance: LACTULOSE
     Dosage: 80 GRAM
     Route: 048
  80. LACTULOSE [Suspect]
     Active Substance: LACTULOSE
     Dosage: 40 GRAM, QD
     Route: 048
     Dates: start: 20200713, end: 20200715
  81. LACTULOSE [Suspect]
     Active Substance: LACTULOSE
     Dosage: 80 GRAM
     Route: 048
  82. LACTULOSE [Suspect]
     Active Substance: LACTULOSE
     Dosage: 80 GRAM
     Route: 048
  83. LACTULOSE [Suspect]
     Active Substance: LACTULOSE
     Dosage: 20 GRAM, BID
     Route: 048
     Dates: start: 20200713, end: 20200715
  84. LACTULOSE [Suspect]
     Active Substance: LACTULOSE
     Dosage: 40 GRAM, QD
     Route: 048
  85. LACTULOSE [Suspect]
     Active Substance: LACTULOSE
     Dosage: 80 GRAM
     Route: 048
  86. LACTULOSE [Suspect]
     Active Substance: LACTULOSE
     Dosage: 80 GRAM
     Route: 048
  87. POTASSIUM CHLORIDE [Suspect]
     Active Substance: POTASSIUM CHLORIDE
     Indication: Product used for unknown indication
     Dosage: UNK
     Route: 065
  88. ISOPROTERENOL HYDROCHLORIDE [Suspect]
     Active Substance: ISOPROTERENOL HYDROCHLORIDE
     Indication: Product used for unknown indication
     Dosage: UNK
     Route: 065
     Dates: start: 20200711, end: 20210713
  89. AMIODARONE [Suspect]
     Active Substance: AMIODARONE
     Indication: Atrial fibrillation
     Dosage: 907.2 MILLIGRAM
     Route: 042
     Dates: start: 20200725, end: 20200727
  90. AMIODARONE [Suspect]
     Active Substance: AMIODARONE
     Dosage: 1814.4 MILLIGRAM
     Route: 042
     Dates: start: 20200725, end: 20200727
  91. NIMBEX [Suspect]
     Active Substance: CISATRACURIUM BESYLATE
     Indication: Neuromuscular blocking therapy
     Dosage: 20 MILLIGRAM, QD
     Route: 042
     Dates: start: 20200715, end: 20200715
  92. NIMBEX [Suspect]
     Active Substance: CISATRACURIUM BESYLATE
     Indication: Endotracheal intubation
  93. FUROSEMIDE [Suspect]
     Active Substance: FUROSEMIDE
     Indication: Product used for unknown indication
     Dosage: UNK
     Route: 065
  94. URAPIDIL [Suspect]
     Active Substance: URAPIDIL
     Indication: Hypertension
     Dosage: 5 MILLIGRAM, Q1HR
     Route: 065
     Dates: start: 20200709, end: 20200709
  95. ENOXAPARIN SODIUM [Suspect]
     Active Substance: ENOXAPARIN SODIUM
     Indication: Phlebitis
     Dosage: 6000 INTERNATIONAL UNIT
     Route: 058
     Dates: start: 20200708, end: 20200807
  96. ENOXAPARIN SODIUM [Suspect]
     Active Substance: ENOXAPARIN SODIUM
     Dosage: 180000 INTERNATIONAL UNIT
     Route: 065
  97. ENOXAPARIN SODIUM [Suspect]
     Active Substance: ENOXAPARIN SODIUM
     Dosage: 6000 INTERNATIONAL UNIT
     Route: 058
  98. MORPHINE HYDROCHLORIDE [Suspect]
     Active Substance: MORPHINE HYDROCHLORIDE
     Indication: Product used for unknown indication
     Dosage: UNK
     Route: 065
  99. THIAMINE HYDROCHLORIDE [Suspect]
     Active Substance: THIAMINE HYDROCHLORIDE
     Indication: Product used for unknown indication
     Dosage: UNK
     Route: 065
  100. HUMALOG [Suspect]
     Active Substance: INSULIN LISPRO
     Indication: Product used for unknown indication
     Dosage: 1 INTERNATIONAL UNIT
     Route: 042
     Dates: start: 20200709, end: 20200730
  101. SUFENTANIL CITRATE [Suspect]
     Active Substance: SUFENTANIL CITRATE
     Indication: Sedation
     Dosage: 0.33 MICROGRAM
     Route: 042
     Dates: start: 20200709, end: 20200717
  102. SUFENTANIL CITRATE [Suspect]
     Active Substance: SUFENTANIL CITRATE
     Indication: Gait disturbance
  103. CLONIDINE [Suspect]
     Active Substance: CLONIDINE
     Indication: Hypertension
     Dosage: UNK, QD
     Route: 042
     Dates: start: 20200717, end: 20200717
  104. HYDROXYZINE [Suspect]
     Active Substance: HYDROXYZINE HYDROCHLORIDE
     Indication: Product used for unknown indication
     Dosage: UNK
     Route: 065
  105. METHYLPREDNISOLONE [Suspect]
     Active Substance: METHYLPREDNISOLONE
     Indication: Acute respiratory distress syndrome
     Dosage: 1800 MILLIGRAM
     Route: 042
  106. METHYLPREDNISOLONE [Suspect]
     Active Substance: METHYLPREDNISOLONE
     Dosage: 1200 MILLIGRAM, QD
     Route: 042
     Dates: start: 20200708, end: 20200723
  107. METHYLPREDNISOLONE [Suspect]
     Active Substance: METHYLPREDNISOLONE
     Dosage: 120 MILLIGRAM, QD
     Route: 042
     Dates: start: 20200708, end: 20200723
  108. METHYLPREDNISOLONE [Suspect]
     Active Substance: METHYLPREDNISOLONE
     Dosage: 1200 MILLIGRAM, QD
     Route: 042
  109. OTILIMAB [Suspect]
     Active Substance: OTILIMAB
     Indication: Coronavirus infection
     Dosage: 1 DOSAGE FORM
     Route: 058
     Dates: start: 20200708
  110. ACETAMINOPHEN [Suspect]
     Active Substance: ACETAMINOPHEN
     Indication: Pyrexia
     Dosage: 1 GRAM
     Route: 042
     Dates: start: 20200719, end: 20200730
  111. LORAZEPAM [Suspect]
     Active Substance: LORAZEPAM
     Indication: Anxiolytic therapy
     Dosage: 10 MILLIGRAM, QD
     Route: 048
     Dates: start: 20200726, end: 20200727
  112. LORAZEPAM [Suspect]
     Active Substance: LORAZEPAM
     Dosage: 2.5 MILLIGRAM, QID
     Route: 048
     Dates: start: 20200726, end: 20200727
  113. LORAZEPAM [Suspect]
     Active Substance: LORAZEPAM
     Dosage: 10 MILLIGRAM
     Route: 048
  114. LORAZEPAM [Suspect]
     Active Substance: LORAZEPAM
     Dosage: 40 MILLIGRAM, QD
     Route: 048
     Dates: start: 20200726, end: 20200727
  115. POLYETHYLENE GLYCOLS [Suspect]
     Active Substance: POLYETHYLENE GLYCOLS
     Indication: Constipation
     Dosage: 4 DOSAGE FORM, QD
     Route: 048
     Dates: start: 20200713, end: 20200715
  116. POLYETHYLENE GLYCOLS [Suspect]
     Active Substance: POLYETHYLENE GLYCOLS
     Dosage: 16 DOSAGE FORM
     Route: 048
  117. INSULIN LISPRO [Suspect]
     Active Substance: INSULIN LISPRO
     Indication: Product used for unknown indication
     Dosage: 1 INTERNATIONAL UNIT
     Route: 042
     Dates: start: 20200709, end: 20200730
  118. PROPOFOL [Suspect]
     Active Substance: PROPOFOL
     Indication: Sedation
     Dosage: 150 MILLIGRAM, Q1HR
     Route: 042
     Dates: start: 20200709, end: 20200720
  119. LOVENOX [Suspect]
     Active Substance: ENOXAPARIN SODIUM
     Indication: Phlebitis
     Dosage: 180000 INTERNATIONAL UNIT
     Route: 065
  120. LOVENOX [Suspect]
     Active Substance: ENOXAPARIN SODIUM
     Dosage: 6000 INTERNATIONAL UNIT, QD
     Route: 058
     Dates: start: 20200708, end: 20200807
  121. MORPHINE [Suspect]
     Active Substance: MORPHINE
     Indication: Product used for unknown indication
     Dosage: UNK
     Route: 065
  122. CLONIDINE [Suspect]
     Active Substance: CLONIDINE
     Indication: Hypertension
     Dosage: UNK
     Route: 042
     Dates: start: 20200717, end: 20200717
  123. IMODIUM [Suspect]
     Active Substance: LOPERAMIDE HYDROCHLORIDE
     Indication: Diarrhoea
     Dosage: 4 MILLIGRAM, QD
     Route: 048
     Dates: start: 20200804, end: 20200804
  124. LOPERAMIDE HYDROCHLORIDE [Suspect]
     Active Substance: LOPERAMIDE HYDROCHLORIDE
     Indication: Diarrhoea
     Dosage: 4 MILLIGRAM
     Route: 048
     Dates: start: 20200804, end: 20200804
  125. LOPERAMIDE HYDROCHLORIDE [Suspect]
     Active Substance: LOPERAMIDE HYDROCHLORIDE
     Dosage: 4 MILLIGRAM
     Route: 065
  126. SPIRAMYCIN [Suspect]
     Active Substance: SPIRAMYCIN
     Indication: Pneumonia
     Dosage: 9 INTERNATIONAL UNIT, QD
     Route: 042
     Dates: start: 20200708, end: 20200715
  127. NOREPINEPHRINE [Suspect]
     Active Substance: NOREPINEPHRINE
     Indication: Sedation
     Dosage: 8 MILLIGRAM, QD
     Route: 042
     Dates: start: 20200709, end: 20200712
  128. NOREPINEPHRINE [Suspect]
     Active Substance: NOREPINEPHRINE
     Dosage: 0.8 MILLIGRAM, Q1HR
     Route: 042
     Dates: start: 20200709, end: 20200712
  129. POTASSIUM GLUCONATE [Concomitant]
     Active Substance: POTASSIUM GLUCONATE
     Indication: Product used for unknown indication
     Dosage: UNK
  130. HYDROXYUREA [Concomitant]
     Active Substance: HYDROXYUREA
     Indication: Product used for unknown indication
     Dosage: UNK
  131. KARDEGIC [Concomitant]
     Active Substance: ASPIRIN DL-LYSINE
     Indication: Product used for unknown indication
     Dosage: UNK
  132. ATORVASTATIN [Concomitant]
     Active Substance: ATORVASTATIN
     Indication: Product used for unknown indication
     Dosage: UNK

REACTIONS (1)
  - Toxic epidermal necrolysis [Fatal]

NARRATIVE: CASE EVENT DATE: 20220809
